APPROVED DRUG PRODUCT: VELETRI
Active Ingredient: EPOPROSTENOL SODIUM
Strength: EQ 0.5MG BASE/VIAL
Dosage Form/Route: INJECTABLE;INJECTION
Application: N022260 | Product #002 | TE Code: AP2
Applicant: ACTELION PHARMACEUTICALS US INC
Approved: Jun 28, 2012 | RLD: Yes | RS: No | Type: RX

PATENTS:
Patent 8318802 | Expires: Mar 15, 2027
Patent 8598227 | Expires: Feb 2, 2027